FAERS Safety Report 20705538 (Version 2)
Quarter: 2022Q2

REPORT INFORMATION
  Report Type: Spontaneous
  Country: CA (occurrence: CA)
  Receive Date: 20220413
  Receipt Date: 20220418
  Transmission Date: 20220721
  Serious: Yes (Hospitalization, Other)
  Sender: FDA-Public Use
  Company Number: CA-SA-SAC20220412000614

PATIENT
  Age: 60 Year
  Sex: Male
  Weight: 175 kg

DRUGS (19)
  1. LANTUS [Suspect]
     Active Substance: INSULIN GLARGINE
     Indication: Product used for unknown indication
     Dosage: UNK
     Route: 058
  2. CLOPIDOGREL BESILATE [Suspect]
     Active Substance: CLOPIDOGREL BESILATE
     Indication: Product used for unknown indication
     Dosage: UNK
  3. INSULIN ASPART [Suspect]
     Active Substance: INSULIN ASPART
     Indication: Product used for unknown indication
     Dosage: UNK
     Route: 058
  4. ELIQUIS [Suspect]
     Active Substance: APIXABAN
     Indication: Product used for unknown indication
     Dosage: UNK
  5. CANDESARTAN [Concomitant]
     Active Substance: CANDESARTAN
  6. CANDESARTAN [Concomitant]
     Active Substance: CANDESARTAN
  7. LASIX [Concomitant]
     Active Substance: FUROSEMIDE
  8. NITROGLYCERIN [Concomitant]
     Active Substance: NITROGLYCERIN
  9. PANTOPRAZOLE [Concomitant]
     Active Substance: PANTOPRAZOLE
  10. PANTOPRAZOLE [Concomitant]
     Active Substance: PANTOPRAZOLE
  11. PREDNISONE [Concomitant]
     Active Substance: PREDNISONE
  12. PREDNISONE [Concomitant]
     Active Substance: PREDNISONE
  13. RANITIDINE [Concomitant]
     Active Substance: RANITIDINE
  14. RANITIDINE [Concomitant]
     Active Substance: RANITIDINE
  15. SOTALOL [Concomitant]
     Active Substance: SOTALOL
  16. SOTALOL [Concomitant]
     Active Substance: SOTALOL
  17. TRAVOPROST [Concomitant]
     Active Substance: TRAVOPROST
  18. TRAVOPROST [Concomitant]
     Active Substance: TRAVOPROST
  19. ASPIRIN [Concomitant]
     Active Substance: ASPIRIN

REACTIONS (4)
  - Cardiac failure acute [Recovered/Resolved]
  - Coronary artery disease [Recovered/Resolved]
  - Prohormone brain natriuretic peptide increased [Recovered/Resolved]
  - Troponin increased [Recovered/Resolved]
